FAERS Safety Report 16773231 (Version 4)
Quarter: 2020Q3

REPORT INFORMATION
  Report Type: Spontaneous
  Country: JP (occurrence: JP)
  Receive Date: 20190904
  Receipt Date: 20200729
  Transmission Date: 20201102
  Serious: Yes (Hospitalization)
  Sender: FDA-Public Use
  Company Number: JP-ELI_LILLY_AND_COMPANY-JP201908004102

PATIENT
  Age: 72 Year
  Sex: Female

DRUGS (1)
  1. TALTZ [Suspect]
     Active Substance: IXEKIZUMAB
     Indication: PSORIASIS
     Dosage: 80 MG, OTHER
     Route: 058
     Dates: start: 20180823, end: 20190214

REACTIONS (2)
  - Interstitial lung disease [Recovering/Resolving]
  - Cough [Unknown]

NARRATIVE: CASE EVENT DATE: 201901
